FAERS Safety Report 10173169 (Version 1)
Quarter: 2014Q2

REPORT INFORMATION
  Report Type: Spontaneous
  Country: US (occurrence: None)
  Receive Date: 20140425
  Receipt Date: 20140425
  Transmission Date: 20141212
  Serious: Yes (Other)
  Sender: FDA-Public Use
  Company Number: 1277390

PATIENT
  Age: 51 Year
  Sex: Female
  Weight: 66.45 kg

DRUGS (3)
  1. ZELBORAF [Suspect]
     Indication: MALIGNANT MELANOMA
     Dosage: IN MAR/APR 2013 AT THE MAXIMUM DOSE (960 MG),ORAL
     Route: 048
     Dates: start: 20130307, end: 20130316
  2. ATENOLOL (ATENOLOL) [Concomitant]
  3. OXYCODONE (OXYCODONE) [Concomitant]

REACTIONS (10)
  - Rash [None]
  - Arthralgia [None]
  - Joint stiffness [None]
  - Rash erythematous [None]
  - Pain in extremity [None]
  - Abasia [None]
  - Pain [None]
  - Weight decreased [None]
  - Neoplasm [None]
  - Skin lesion [None]
